FAERS Safety Report 8163872-3 (Version None)
Quarter: 2012Q1

REPORT INFORMATION
  Report Type: 
  Country: None (occurrence: None)
  Receive Date: 20120224
  Receipt Date: 20120221
  Transmission Date: 20120608
  Serious: Yes (Life-Threatening, Other)
  Sender: FDA-Public Use
  Company Number: PHFR2010GB01125

PATIENT
  Sex: Female

DRUGS (14)
  1. CLOZARIL [Suspect]
     Dosage: 200 MG, QD
     Route: 048
  2. CLOZARIL [Suspect]
     Dosage: 250 MG, DAILY
     Route: 048
  3. CLOZARIL [Suspect]
     Dosage: 450 MG, QD
     Route: 048
  4. CLOZARIL [Suspect]
     Dosage: 300 MG, QD
     Route: 048
  5. CLOZARIL [Suspect]
     Indication: SCHIZOPHRENIA
     Dosage: 75 MG
     Route: 048
     Dates: start: 20100614, end: 20101004
  6. CLOZARIL [Suspect]
     Dosage: 350 MG, QD
     Route: 048
  7. CLOZARIL [Suspect]
     Dosage: 600 MG, QD
     Route: 048
     Dates: start: 20110903
  8. CLOZARIL [Suspect]
     Dosage: 150 MG, QD
     Route: 048
  9. LITHIUM CARBONATE [Concomitant]
     Dosage: 600 MG, DAILY
     Route: 048
  10. ABILIFY [Concomitant]
     Dosage: 15 MG, QD
     Route: 048
  11. LEVOTHYROXINE SODIUM [Concomitant]
     Dosage: 75 UG, DAILY
  12. CLOZARIL [Suspect]
     Dosage: 400 MG, QD
     Route: 048
  13. CLOZARIL [Suspect]
     Dosage: 350 MG, QD
     Route: 048
  14. AMISULPRIDE [Concomitant]

REACTIONS (16)
  - LOWER RESPIRATORY TRACT INFECTION [None]
  - DELUSION [None]
  - PARANOIA [None]
  - BODY TEMPERATURE INCREASED [None]
  - FEELING ABNORMAL [None]
  - SYNCOPE [None]
  - DIZZINESS [None]
  - APTYALISM [None]
  - ANXIETY [None]
  - PANIC ATTACK [None]
  - MENTAL DISORDER [None]
  - AGITATION [None]
  - PALPITATIONS [None]
  - STRESS [None]
  - DYSPHAGIA [None]
  - ANTIPSYCHOTIC DRUG LEVEL ABOVE THERAPEUTIC [None]
